FAERS Safety Report 8605252 (Version 27)
Quarter: 2017Q3

REPORT INFORMATION
  Report Type: Report from Study
  Country: CA (occurrence: CA)
  Receive Date: 20120608
  Receipt Date: 20170727
  Transmission Date: 20171128
  Serious: Yes (Other)
  Sender: FDA-Public Use
  Company Number: CA-ROCHE-1075675

PATIENT
  Age: 67 Year
  Sex: Female
  Weight: 92.7 kg

DRUGS (14)
  1. ACTEMRA [Suspect]
     Active Substance: TOCILIZUMAB
     Route: 042
     Dates: start: 20120927
  2. ACTEMRA [Suspect]
     Active Substance: TOCILIZUMAB
     Dosage: 4 MG/KG
     Route: 042
     Dates: start: 201603
  3. ACTEMRA [Suspect]
     Active Substance: TOCILIZUMAB
     Indication: POLYMYALGIA RHEUMATICA
     Route: 042
     Dates: start: 20110922
  4. ACTEMRA [Suspect]
     Active Substance: TOCILIZUMAB
     Route: 042
     Dates: start: 20150923
  5. METHOTREXATE. [Concomitant]
     Active Substance: METHOTREXATE
  6. ASPIRIN. [Concomitant]
     Active Substance: ASPIRIN
  7. HYDROCHLOROTHIAZIDE. [Concomitant]
     Active Substance: HYDROCHLOROTHIAZIDE
  8. FOLIC ACID. [Concomitant]
     Active Substance: FOLIC ACID
  9. ACTEMRA [Suspect]
     Active Substance: TOCILIZUMAB
     Route: 042
     Dates: start: 20141104
  10. ACTEMRA [Suspect]
     Active Substance: TOCILIZUMAB
     Route: 042
     Dates: start: 20141204
  11. ACTEMRA [Suspect]
     Active Substance: TOCILIZUMAB
     Route: 042
     Dates: start: 20160222
  12. ACTONEL [Concomitant]
     Active Substance: RISEDRONATE SODIUM
  13. PREDNISONE. [Concomitant]
     Active Substance: PREDNISONE
  14. BISOPROLOL [Concomitant]
     Active Substance: BISOPROLOL

REACTIONS (28)
  - Phlebitis [Recovering/Resolving]
  - Peripheral swelling [Unknown]
  - Weight increased [Not Recovered/Not Resolved]
  - Oedema peripheral [Not Recovered/Not Resolved]
  - Off label use [Unknown]
  - Nasal discharge discolouration [Unknown]
  - Fatigue [Not Recovered/Not Resolved]
  - Mouth ulceration [Recovering/Resolving]
  - Balance disorder [Unknown]
  - Arthritis [Unknown]
  - Pain [Unknown]
  - Joint stiffness [Unknown]
  - Blood cholesterol increased [Unknown]
  - Tooth disorder [Unknown]
  - Abdominal pain [Recovered/Resolved]
  - Body temperature decreased [Unknown]
  - Blood pressure increased [Not Recovered/Not Resolved]
  - Fatigue [Not Recovered/Not Resolved]
  - Weight decreased [Not Recovered/Not Resolved]
  - Sleep apnoea syndrome [Unknown]
  - Poor venous access [Recovered/Resolved]
  - Paraesthesia [Unknown]
  - Oxygen saturation decreased [Unknown]
  - Musculoskeletal stiffness [Not Recovered/Not Resolved]
  - Neoplasm malignant [Unknown]
  - Skin discolouration [Not Recovered/Not Resolved]
  - Nasopharyngitis [Not Recovered/Not Resolved]
  - Oedema peripheral [Unknown]

NARRATIVE: CASE EVENT DATE: 20120308
